FAERS Safety Report 7958328-4 (Version None)
Quarter: 2011Q4

REPORT INFORMATION
  Report Type: 
  Country: None (occurrence: None)
  Receive Date: 20111205
  Receipt Date: 20110721
  Transmission Date: 20120403
  Serious: Yes (Hospitalization)
  Sender: FDA-Public Use
  Company Number: DE-ACTELION-A-US2011-57386

PATIENT

DRUGS (1)
  1. VENTAVIS [Suspect]
     Indication: PULMONARY ARTERIAL HYPERTENSION
     Dosage: 2.5 UG, UNK
     Route: 055
     Dates: start: 20110221

REACTIONS (3)
  - HAEMATOCHEZIA [None]
  - YELLOW SKIN [None]
  - ARRHYTHMIA [None]
